FAERS Safety Report 8501033 (Version 2)
Quarter: 2013Q3

REPORT INFORMATION
  Report Type: Report from Study
  Country: US (occurrence: US)
  Receive Date: 20120410
  Receipt Date: 20130917
  Transmission Date: 20140515
  Serious: Yes (Other)
  Sender: FDA-Public Use
  Company Number: PHHY2012US029975

PATIENT
  Sex: Female

DRUGS (12)
  1. TASIGNA [Suspect]
     Indication: CHRONIC MYELOID LEUKAEMIA
     Dosage: 450 MG, DAILY
     Route: 048
     Dates: start: 201106
  2. LOMOTIL [Concomitant]
  3. PARADEX [Concomitant]
  4. ZOFRAN [Concomitant]
     Dosage: 8 MG, PRN
     Route: 048
  5. CALTRATE 600 + VITAMIN D [Concomitant]
     Dosage: 1 DF, DAILY
     Route: 048
  6. MAGNESIUM [Concomitant]
     Dosage: 250 MG, UNK
     Route: 048
  7. ALDACTONE [Concomitant]
     Dosage: 25 MG, Q12H
     Route: 048
  8. EDECRINE [Concomitant]
     Dosage: 25 MG, BID
     Route: 048
  9. TOPROL XL [Concomitant]
     Dosage: 50 MG, TID
     Route: 048
  10. LABETALOL HYDROCHLORIDE [Concomitant]
     Dosage: 300 MG, BID
     Route: 048
  11. COUMADINE [Concomitant]
     Route: 048
  12. SYNTHROID [Concomitant]
     Route: 048

REACTIONS (2)
  - Pulmonary hypertension [Not Recovered/Not Resolved]
  - Dyspnoea [Not Recovered/Not Resolved]
